FAERS Safety Report 5838639-9 (Version None)
Quarter: 2008Q3

REPORT INFORMATION
  Report Type: 
  Country: None (occurrence: None)
  Receive Date: 20080808
  Receipt Date: 20080711
  Transmission Date: 20090109
  Serious: No
  Sender: FDA-Public Use
  Company Number: A0737211A

PATIENT
  Age: 64 Year
  Sex: Female

DRUGS (6)
  1. ALTABAX [Suspect]
     Indication: INFLAMMATION
     Route: 061
     Dates: start: 20080703, end: 20080703
  2. RANITIDINE HCL [Concomitant]
  3. EVISTA [Concomitant]
  4. VITAMIN D [Concomitant]
  5. CALCIUM [Concomitant]
  6. IMITREX [Concomitant]

REACTIONS (1)
  - APPLICATION SITE IRRITATION [None]
